FAERS Safety Report 10476071 (Version 2)
Quarter: 2014Q3

REPORT INFORMATION
  Report Type: Spontaneous
  Country: IE (occurrence: IE)
  Receive Date: 20140925
  Receipt Date: 20140925
  Transmission Date: 20150326
  Serious: Yes (Other)
  Sender: FDA-Public Use
  Company Number: IE-BAXTER-2014BAX047698

PATIENT
  Age: 19 Year
  Sex: Female

DRUGS (6)
  1. SODIUM CHLORIDE INJECTION 0.9% W/V [Suspect]
     Active Substance: SODIUM CHLORIDE
     Route: 042
     Dates: start: 20140731
  2. SODIUM CHLORIDE INJECTION 0.9% W/V [Suspect]
     Active Substance: SODIUM CHLORIDE
     Indication: MEDICATION DILUTION
     Route: 042
     Dates: start: 20140731
  3. CIPROX /00697201/ [Suspect]
     Active Substance: CIPROFLOXACIN
     Route: 042
     Dates: start: 20140731
  4. TAZOCIN [Suspect]
     Active Substance: PIPERACILLIN SODIUM\TAZOBACTAM SODIUM
     Indication: PRODUCT USED FOR UNKNOWN INDICATION
     Route: 042
     Dates: start: 20140731
  5. CIPROX /00697201/ [Suspect]
     Active Substance: CIPROFLOXACIN
     Indication: PRODUCT USED FOR UNKNOWN INDICATION
     Route: 042
     Dates: start: 20140731
  6. SODIUM CHLORIDE INJECTION 0.9% W/V [Suspect]
     Active Substance: SODIUM CHLORIDE
     Route: 042
     Dates: start: 20140731

REACTIONS (5)
  - Throat tightness [None]
  - Eyelid oedema [None]
  - Lip swelling [None]
  - Nasal obstruction [None]
  - Superior vena cava occlusion [Recovering/Resolving]

NARRATIVE: CASE EVENT DATE: 20140805
